FAERS Safety Report 7203726-X (Version None)
Quarter: 2010Q4

REPORT INFORMATION
  Report Type: 
  Country: None (occurrence: None)
  Receive Date: 20101217
  Receipt Date: 20101130
  Transmission Date: 20110411
  Serious: Yes (Other)
  Sender: FDA-Public Use
  Company Number: 022922

PATIENT
  Sex: Female

DRUGS (1)
  1. CIMZIA [Suspect]
     Indication: BONE OPERATION
     Dosage: (SUBCUTANEOUS)
     Route: 058
     Dates: start: 20100219

REACTIONS (1)
  - BONE OPERATION [None]
